FAERS Safety Report 19724861 (Version 1)
Quarter: 2021Q3

REPORT INFORMATION
  Report Type: Other
  Country: CA (occurrence: CA)
  Receive Date: 20210820
  Receipt Date: 20210820
  Transmission Date: 20211014
  Serious: Yes (Other)
  Sender: FDA-Public Use
  Company Number: CA-APOTEX-2021AP034400

PATIENT
  Age: 46 Year
  Sex: Female

DRUGS (2)
  1. FORMOTEROL FUMARATE;MOMETASONE FUROATE [Suspect]
     Active Substance: FORMOTEROL FUMARATE\MOMETASONE FUROATE
     Indication: PRODUCT USED FOR UNKNOWN INDICATION
     Dosage: UNK
     Route: 065
  2. BUDESONIDE;FORMOTEROL FUMARATE [Suspect]
     Active Substance: BUDESONIDE\FORMOTEROL FUMARATE
     Indication: PRODUCT USED FOR UNKNOWN INDICATION
     Dosage: UNK
     Route: 065

REACTIONS (17)
  - Bronchopulmonary aspergillosis [Unknown]
  - Sputum increased [Unknown]
  - Bronchial wall thickening [Unknown]
  - Asthma [Unknown]
  - Cough [Unknown]
  - Accident [Unknown]
  - Sleep disorder due to a general medical condition [Unknown]
  - Nasal congestion [Unknown]
  - Pneumonitis [Unknown]
  - Mycobacterium avium complex infection [Unknown]
  - Obstructive airways disorder [Unknown]
  - Wheezing [Unknown]
  - Dyspnoea [Unknown]
  - Lung disorder [Unknown]
  - Blood count abnormal [Unknown]
  - Productive cough [Unknown]
  - Therapeutic product effect incomplete [Unknown]
